FAERS Safety Report 22013878 (Version 2)
Quarter: 2023Q2

REPORT INFORMATION
  Report Type: Spontaneous
  Country: US (occurrence: US)
  Receive Date: 20230221
  Receipt Date: 20230403
  Transmission Date: 20230721
  Serious: No
  Sender: FDA-Public Use
  Company Number: US-ELI_LILLY_AND_COMPANY-US202302000409

PATIENT
  Age: 76 Year
  Sex: Female

DRUGS (1)
  1. FORTEO [Suspect]
     Active Substance: TERIPARATIDE
     Indication: Product used for unknown indication
     Dosage: UNK UNK, UNKNOWN
     Route: 058
     Dates: start: 20230126

REACTIONS (12)
  - Abdominal pain [Unknown]
  - Gastrointestinal pain [Unknown]
  - Rash [Unknown]
  - Injection site mass [Unknown]
  - Paraesthesia [Unknown]
  - Pruritus [Unknown]
  - Rash erythematous [Unknown]
  - Tooth infection [Not Recovered/Not Resolved]
  - Temporomandibular joint syndrome [Unknown]
  - Tooth abscess [Unknown]
  - Loose tooth [Unknown]
  - Hypersensitivity [Unknown]

NARRATIVE: CASE EVENT DATE: 20230127
